FAERS Safety Report 15797194 (Version 2)
Quarter: 2019Q1

REPORT INFORMATION
  Report Type: Spontaneous
  Country: US (occurrence: US)
  Receive Date: 20190108
  Receipt Date: 20190131
  Transmission Date: 20190417
  Serious: No
  Sender: FDA-Public Use
  Company Number: US-JNJFOC-20181235758

PATIENT
  Sex: Female
  Weight: 113.4 kg

DRUGS (1)
  1. STELARA [Suspect]
     Active Substance: USTEKINUMAB
     Indication: PSORIASIS
     Route: 058
     Dates: start: 2018

REACTIONS (3)
  - Arthritis [Unknown]
  - Peripheral swelling [Unknown]
  - Drug ineffective [Unknown]

NARRATIVE: CASE EVENT DATE: 2018
